FAERS Safety Report 5063744-7 (Version None)
Quarter: 2006Q3

REPORT INFORMATION
  Report Type: 
  Country: None (occurrence: None)
  Receive Date: 20060724
  Receipt Date: 20060714
  Transmission Date: 20061208
  Serious: Yes (Other)
  Sender: FDA-Public Use
  Company Number: 2006088056

PATIENT
  Sex: Male

DRUGS (1)
  1. NARDIL (PHENEZLINE SULFATE) [Suspect]
     Indication: PANIC DISORDER
     Dates: start: 19810101

REACTIONS (8)
  - DEPERSONALISATION [None]
  - DEPRESSION [None]
  - DISSOCIATION [None]
  - DRUG INEFFECTIVE [None]
  - EMOTIONAL DISORDER [None]
  - MEMORY IMPAIRMENT [None]
  - PANIC ATTACK [None]
  - PHARMACEUTICAL PRODUCT COMPLAINT [None]
